FAERS Safety Report 9989052 (Version 1)
Quarter: 2014Q1

REPORT INFORMATION
  Report Type: Report from Study
  Country: US (occurrence: US)
  Receive Date: 20140310
  Receipt Date: 20140310
  Transmission Date: 20141002
  Serious: No
  Sender: FDA-Public Use
  Company Number: US-ABBVIE-13P-163-1128777-00

PATIENT
  Age: 12 Year
  Sex: Female

DRUGS (10)
  1. HUMIRA [Suspect]
     Indication: CROHN^S DISEASE
     Dates: start: 201112
  2. METHOTREXATE [Concomitant]
     Indication: CROHN^S DISEASE
     Dosage: 2.5MG PILLS-15MG WEEKLY
  3. CLARINEX [Concomitant]
     Indication: HYPERSENSITIVITY
     Dosage: 5MG PER ML-2 TEASPOONS PER DAY
  4. NASONEX [Concomitant]
     Indication: PRODUCT USED FOR UNKNOWN INDICATION
  5. FOLIC ACID [Concomitant]
     Indication: VITAMIN SUPPLEMENTATION
     Dosage: 1MG DAILY
  6. VITAMIN B 12 [Concomitant]
     Indication: VITAMIN SUPPLEMENTATION
     Dosage: DAILY
     Route: 060
  7. VITAMIN C [Concomitant]
     Indication: VITAMIN SUPPLEMENTATION
     Dosage: 480 DAILY
  8. PROBIOTICS [Concomitant]
     Indication: PROPHYLAXIS
     Dosage: DAILY
  9. FISH OIL [Concomitant]
     Indication: NUTRITIONAL SUPPLEMENTATION
     Dosage: DAILY
  10. CENTRUM MULTIVITAMIN FOR TEENS [Concomitant]
     Indication: VITAMIN SUPPLEMENTATION
     Dosage: DAILY

REACTIONS (3)
  - Injection site hypoaesthesia [Recovered/Resolved]
  - Injection site paraesthesia [Recovered/Resolved]
  - Headache [Recovered/Resolved]
